FAERS Safety Report 16332285 (Version 1)
Quarter: 2019Q2

REPORT INFORMATION
  Report Type: Spontaneous
  Country: US (occurrence: US)
  Receive Date: 20190413
  Receipt Date: 20190413
  Transmission Date: 20190711
  Serious: No
  Sender: FDA-Public Use
  Company Number: None

PATIENT
  Age: 76 Year
  Sex: Female

DRUGS (1)
  1. HYCAMTIN [Suspect]
     Active Substance: TOPOTECAN HYDROCHLORIDE
     Dates: start: 201902

REACTIONS (4)
  - Decreased appetite [None]
  - Dizziness [None]
  - Nausea [None]
  - Vulvovaginal pruritus [None]

NARRATIVE: CASE EVENT DATE: 20190413
